FAERS Safety Report 25357733 (Version 1)
Quarter: 2025Q2

REPORT INFORMATION
  Report Type: Spontaneous
  Country: US (occurrence: US)
  Receive Date: 20250526
  Receipt Date: 20250526
  Transmission Date: 20250717
  Serious: No
  Sender: RECKITT BENCKISER
  Company Number: US-PROD-AS2-212756134-20-24-USA-RB-0001692

PATIENT
  Age: 61 Year
  Sex: Male

DRUGS (4)
  1. MUCINEX MAXIMUM STRENGTH [Suspect]
     Active Substance: GUAIFENESIN
     Indication: Influenza
     Route: 048
     Dates: start: 202405, end: 202405
  2. MUCINEX MAXIMUM STRENGTH [Suspect]
     Active Substance: GUAIFENESIN
     Indication: Respiratory tract congestion
  3. MUCINEX [Suspect]
     Active Substance: GUAIFENESIN
     Indication: Influenza
     Route: 048
     Dates: start: 202405, end: 202405
  4. MUCINEX [Suspect]
     Active Substance: GUAIFENESIN
     Indication: Respiratory tract congestion

REACTIONS (1)
  - Epistaxis [Recovered/Resolved]

NARRATIVE: CASE EVENT DATE: 20240501
